FAERS Safety Report 9018125 (Version 1)
Quarter: 2013Q1

REPORT INFORMATION
  Report Type: Spontaneous
  Country: US (occurrence: US)
  Receive Date: 20130117
  Receipt Date: 20130117
  Transmission Date: 20140127
  Serious: No
  Sender: FDA-Public Use
  Company Number: US-009507513-1301USA005413

PATIENT
  Age: 51 Year
  Sex: Male

DRUGS (3)
  1. TEMOZOLOMIDE [Suspect]
     Indication: MALIGNANT MELANOMA
     Dosage: UNK
     Dates: start: 2010, end: 2011
  2. CARBOPLATIN [Concomitant]
     Dosage: UNK
     Dates: start: 201003, end: 201103
  3. PACLITAXEL [Concomitant]
     Dosage: UNK
     Dates: start: 201003

REACTIONS (1)
  - Drug ineffective [Unknown]
